FAERS Safety Report 7364757-2 (Version None)
Quarter: 2011Q1

REPORT INFORMATION
  Report Type: 
  Country: None (occurrence: None)
  Receive Date: 20110321
  Receipt Date: 20110316
  Transmission Date: 20110831
  Serious: Yes (Death)
  Sender: FDA-Public Use
  Company Number: US-AMGEN-USASP2011013245

PATIENT
  Sex: Male

DRUGS (2)
  1. NPLATE [Suspect]
     Indication: THROMBOCYTOPENIA
     Dosage: 1 A?G/KG, UNK
     Dates: start: 20100219, end: 20100315
  2. NPLATE [Suspect]
     Dates: end: 20100402

REACTIONS (1)
  - NEOPLASM MALIGNANT [None]
